FAERS Safety Report 4331362-1 (Version None)
Quarter: 2004Q1

REPORT INFORMATION
  Report Type: 
  Country: None (occurrence: None)
  Receive Date: 20040331
  Receipt Date: 20040319
  Transmission Date: 20041129
  Serious: Yes (Hospitalization)
  Sender: FDA-Public Use
  Company Number: DE-JNJFOC-20040304569

PATIENT
  Sex: Male
  Weight: 83 kg

DRUGS (8)
  1. REMICADE [Suspect]
     Indication: ANKYLOSING SPONDYLITIS
     Dosage: 200 MG, INTRAVENOUS
     Route: 042
     Dates: start: 20030113
  2. LANTAREL (METHOTREXATE SODIUM) [Concomitant]
  3. PREDNISOLONE [Concomitant]
  4. PROXEN (NAPROXEN) [Concomitant]
  5. AZULFIDINE [Concomitant]
  6. CAPTO (CAPTOPRIL) [Concomitant]
  7. VERA (VERAPAMIL HYDROCHLORIDE) [Concomitant]
  8. ALLO (ALLOPURINOL) [Concomitant]

REACTIONS (2)
  - MENISCUS LESION [None]
  - RIB FRACTURE [None]
